FAERS Safety Report 17485185 (Version 1)
Quarter: 2020Q1

REPORT INFORMATION
  Report Type: Spontaneous
  Country: US (occurrence: US)
  Receive Date: 20200302
  Receipt Date: 20200302
  Transmission Date: 20200409
  Serious: Yes (Hospitalization, Other)
  Sender: FDA-Public Use
  Company Number: US-PURDUE PHARMA-GBR-2020-0075472

PATIENT
  Age: 54 Year
  Sex: Male

DRUGS (2)
  1. NON-PMN MORPHINE SULFATE [Suspect]
     Active Substance: MORPHINE SULFATE
     Dosage: UNK (FREQUENCY AND DOSE OF MORPHINE WERE INCREASED)
     Route: 042
  2. NON-PMN MORPHINE SULFATE [Suspect]
     Active Substance: MORPHINE SULFATE
     Indication: ABDOMINAL PAIN
     Dosage: UNK (LOW DOSES)
     Route: 042

REACTIONS (2)
  - Sphincter of Oddi dysfunction [Recovered/Resolved]
  - Abdominal pain [Recovered/Resolved]
